FAERS Safety Report 8000273-2 (Version None)
Quarter: 2011Q4

REPORT INFORMATION
  Report Type: 
  Country: None (occurrence: None)
  Receive Date: 20111220
  Receipt Date: 20111220
  Transmission Date: 20120403
  Serious: Yes (Hospitalization)
  Sender: FDA-Public Use
  Company Number: None

PATIENT
  Sex: Male
  Weight: 69.4003 kg

DRUGS (9)
  1. CIPROFLOXACIN [Concomitant]
  2. AGGRENOX [Concomitant]
  3. NORCO [Concomitant]
  4. ATORVASTATIN CALCIUM [Suspect]
     Indication: HEPATITIS
     Dosage: 40MG QHS PO; 40MG QHS PO
     Route: 048
     Dates: start: 20111011
  5. ATORVASTATIN CALCIUM [Suspect]
     Indication: ABDOMINAL PAIN
     Dosage: 40MG QHS PO; 40MG QHS PO
     Route: 048
     Dates: start: 20111011
  6. ATORVASTATIN CALCIUM [Suspect]
     Indication: HEPATITIS
     Dosage: 40MG QHS PO; 40MG QHS PO
     Route: 048
     Dates: start: 20111010
  7. ATORVASTATIN CALCIUM [Suspect]
     Indication: ABDOMINAL PAIN
     Dosage: 40MG QHS PO; 40MG QHS PO
     Route: 048
     Dates: start: 20111010
  8. CELEXA [Concomitant]
  9. FLOMAX [Concomitant]

REACTIONS (2)
  - ABDOMINAL PAIN [None]
  - HEPATITIS [None]
